FAERS Safety Report 5018222-8 (Version None)
Quarter: 2006Q2

REPORT INFORMATION
  Report Type: 
  Country: None (occurrence: None)
  Receive Date: 20060530
  Receipt Date: 20060515
  Transmission Date: 20061013
  Serious: Yes (Hospitalization)
  Sender: FDA-Public Use
  Company Number: 2006064204

PATIENT
  Age: 37 Year
  Sex: Male
  Weight: 65 kg

DRUGS (8)
  1. SUTENT [Suspect]
     Indication: RENAL CELL CARCINOMA STAGE UNSPECIFIED
     Dosage: 50 MG (50 MG, 1 IN 1 D), ORAL
     Route: 048
     Dates: start: 20060306
  2. FRAXIPARINE (HEPARIN-FRACTION, CALCIUM SALT) [Concomitant]
  3. OMEPRAZOLE [Concomitant]
  4. ERCEFURYL (NIFUROXAZIDE) [Concomitant]
  5. LOPERAMIDE [Concomitant]
  6. MORPHINE SULFATE [Concomitant]
  7. DAFALGAN CODEINE (CODEINE PHOSPHATE, PARACETAMOL) [Concomitant]
  8. ZOFRAN [Concomitant]

REACTIONS (3)
  - ANAEMIA [None]
  - HYPOKALAEMIA [None]
  - VISION BLURRED [None]
